FAERS Safety Report 8176475-1 (Version None)
Quarter: 2012Q1

REPORT INFORMATION
  Report Type: 
  Country: None (occurrence: None)
  Receive Date: 20120301
  Receipt Date: 20120228
  Transmission Date: 20120608
  Serious: Yes (Hospitalization)
  Sender: FDA-Public Use
  Company Number: US-PFIZER INC-2012053034

PATIENT
  Sex: Female

DRUGS (2)
  1. PRISTIQ [Suspect]
     Dosage: 100 MG, UNK
     Route: 048
  2. PREDNISONE TAB [Suspect]
     Indication: PLATELET COUNT DECREASED
     Dosage: UNK

REACTIONS (1)
  - PLATELET COUNT DECREASED [None]
